FAERS Safety Report 6339618-8 (Version None)
Quarter: 2009Q3

REPORT INFORMATION
  Report Type: 
  Country: None (occurrence: None)
  Receive Date: 20090821
  Receipt Date: 20090528
  Transmission Date: 20100115
  Serious: No
  Sender: FDA-Public Use
  Company Number: 8047050

PATIENT
  Age: 50 Year
  Sex: Female
  Weight: 91.3 kg

DRUGS (1)
  1. CIMZIA [Suspect]
     Indication: CROHN'S DISEASE
     Dosage: 400 MG SC
     Route: 058
     Dates: start: 20090508

REACTIONS (6)
  - ASTHENIA [None]
  - DIARRHOEA [None]
  - FATIGUE [None]
  - MUSCLE SPASMS [None]
  - NIGHT SWEATS [None]
  - PRURITUS [None]
